FAERS Safety Report 7409849-4 (Version None)
Quarter: 2011Q2

REPORT INFORMATION
  Report Type: 
  Country: None (occurrence: None)
  Receive Date: 20110412
  Receipt Date: 20110404
  Transmission Date: 20111010
  Serious: Yes (Other)
  Sender: FDA-Public Use
  Company Number: US-ELI_LILLY_AND_COMPANY-US201104001843

PATIENT
  Age: 55 Year
  Sex: Male

DRUGS (1)
  1. EFFIENT [Suspect]
     Dosage: UNK, UNKNOWN
     Route: 065
     Dates: start: 20100501, end: 20101201

REACTIONS (2)
  - PERICARDIAL HAEMORRHAGE [None]
  - ANGINA PECTORIS [None]
